FAERS Safety Report 9554310 (Version 2)
Quarter: 2014Q1

REPORT INFORMATION
  Report Type: Spontaneous
  Country: US (occurrence: US)
  Receive Date: 20130925
  Receipt Date: 20140102
  Transmission Date: 20141002
  Serious: Yes (Other)
  Sender: FDA-Public Use
  Company Number: US-INCYTE CORPORATION-2013IN002166

PATIENT
  Sex: Male
  Weight: 82.7 kg

DRUGS (5)
  1. JAKAFI [Suspect]
     Indication: MYELOFIBROSIS
     Dosage: 20 MG, BID
     Route: 048
     Dates: start: 20130328, end: 20130822
  2. JAKAFI [Suspect]
     Indication: POLYCYTHAEMIA VERA
  3. DECITABINE [Concomitant]
  4. HYDREA [Concomitant]
  5. LOVENOX [Concomitant]

REACTIONS (2)
  - Blast cell count increased [Recovered/Resolved]
  - Disease progression [Recovered/Resolved]
